FAERS Safety Report 19109394 (Version 4)
Quarter: 2021Q2

REPORT INFORMATION
  Report Type: Spontaneous
  Country: US (occurrence: US)
  Receive Date: 20210409
  Receipt Date: 20210611
  Transmission Date: 20210717
  Serious: Yes (Hospitalization, Other)
  Sender: FDA-Public Use
  Company Number: US-AUROBINDO-AUR-APL-2021-014243

PATIENT
  Age: 52 Year
  Sex: Female

DRUGS (5)
  1. CAPECITABINE. [Concomitant]
     Active Substance: CAPECITABINE
     Dosage: 1000 MILLIGRAM/SQ. METER, TWO TIMES A DAY, DAYS 1?14, EVERY 21 DAYS
     Route: 048
  2. CAPECITABINE. [Concomitant]
     Active Substance: CAPECITABINE
     Dosage: 1000 MILLIGRAM/SQ. METER, CYCLICAL (ON DAYS 1?14, EVERY 21 DAYS (TWICE DAILY ) )
     Route: 048
  3. OXALIPLATIN INJECTION [Suspect]
     Active Substance: OXALIPLATIN
     Indication: COLON CANCER METASTATIC
     Dosage: 130 MILLIGRAM/SQ. METER, CYCLICAL (ON DAY 1, EVERY 21 DAYS )
     Route: 042
     Dates: start: 20190925, end: 20200212
  4. OXALIPLATIN INJECTION [Suspect]
     Active Substance: OXALIPLATIN
     Dosage: 85 MILLIGRAM/SQ. METER, EVERY 14 DAYS
     Route: 042
  5. CAPECITABINE. [Concomitant]
     Active Substance: CAPECITABINE
     Indication: COLON CANCER METASTATIC
     Dosage: UNK, ON DAYS 2 114, EVERY 21 DAYS
     Route: 065

REACTIONS (15)
  - Grip strength decreased [Recovered/Resolved]
  - Cold dysaesthesia [Not Recovered/Not Resolved]
  - Hypertonia [Recovered/Resolved]
  - Neurotoxicity [Recovered/Resolved]
  - Dysarthria [Recovered/Resolved]
  - Tremor [Recovered/Resolved]
  - Speech disorder [Recovered/Resolved]
  - Hypokinesia [Recovered/Resolved]
  - Freezing phenomenon [Recovered/Resolved]
  - Temperature intolerance [Not Recovered/Not Resolved]
  - Hyporeflexia [Recovered/Resolved]
  - Muscle spasms [Recovered/Resolved]
  - Vision blurred [Recovered/Resolved]
  - Paraesthesia [Recovered/Resolved]
  - Visual impairment [Recovered/Resolved]

NARRATIVE: CASE EVENT DATE: 2019
